FAERS Safety Report 6178184-7 (Version None)
Quarter: 2009Q2

REPORT INFORMATION
  Report Type: 
  Country: None (occurrence: None)
  Receive Date: 20090504
  Receipt Date: 20090427
  Transmission Date: 20091009
  Serious: Yes (Congenital Anomaly, Other)
  Sender: FDA-Public Use
  Company Number: SA-ABBOTT-09P-259-0568446-00

PATIENT
  Age: 1 Day
  Sex: Female
  Weight: 1.4 kg

DRUGS (1)
  1. DEPAKENE [Suspect]
     Indication: DRUG EXPOSURE DURING PREGNANCY
     Route: 064

REACTIONS (18)
  - ACUTE RESPIRATORY DISTRESS SYNDROME [None]
  - ANOMALY OF EXTERNAL EAR CONGENITAL [None]
  - ANOMALY OF ORBIT, CONGENITAL [None]
  - CLINODACTYLY [None]
  - CONGENITAL HAND MALFORMATION [None]
  - CONGENITAL NOSE MALFORMATION [None]
  - DRUG EXPOSURE DURING PREGNANCY [None]
  - DYSMORPHISM [None]
  - FINGER DEFORMITY [None]
  - FOETAL ANTICONVULSANT SYNDROME [None]
  - LIMB MALFORMATION [None]
  - LIMB REDUCTION DEFECT [None]
  - NECK DEFORMITY [None]
  - NIPPLE DISORDER [None]
  - PREMATURE BABY [None]
  - RETROGNATHIA [None]
  - SKULL MALFORMATION [None]
  - THROMBOCYTOPENIA [None]
